FAERS Safety Report 6290209-7 (Version None)
Quarter: 2009Q3

REPORT INFORMATION
  Report Type: 
  Country: None (occurrence: None)
  Receive Date: 20090730
  Receipt Date: 20090112
  Transmission Date: 20100115
  Serious: No
  Sender: FDA-Public Use
  Company Number: US-BRISTOL-MYERS SQUIBB COMPANY-14467435

PATIENT

DRUGS (3)
  1. COUMADIN [Suspect]
  2. TYLENOL (CAPLET) [Concomitant]
  3. VICODIN [Concomitant]

REACTIONS (1)
  - VOMITING [None]
